FAERS Safety Report 24439523 (Version 3)
Quarter: 2024Q4

REPORT INFORMATION
  Report Type: Spontaneous
  Country: US (occurrence: US)
  Receive Date: 20241015
  Receipt Date: 20241114
  Transmission Date: 20250115
  Serious: Yes (Life-Threatening, Disabling, Other)
  Sender: SUNOVION
  Company Number: US-SMPA-2024SPA003585

PATIENT

DRUGS (4)
  1. APTIOM [Suspect]
     Active Substance: ESLICARBAZEPINE ACETATE
     Indication: Partial seizures
     Dosage: 1200 MG, QD (2 TAB(S))
     Route: 048
     Dates: start: 2019
  2. CLONAZEPAM [Concomitant]
     Active Substance: CLONAZEPAM
     Indication: Seizure
     Dosage: 1 MG, QD
     Route: 048
     Dates: start: 2024
  3. NAYZILAM [Concomitant]
     Active Substance: MIDAZOLAM
     Indication: Seizure
     Dosage: 5 MG
     Route: 055
     Dates: start: 2024
  4. KEPPRA [Concomitant]
     Active Substance: LEVETIRACETAM
     Dosage: UNK
     Route: 042
     Dates: start: 2024

REACTIONS (6)
  - Loss of consciousness [Not Recovered/Not Resolved]
  - Therapy interrupted [Not Recovered/Not Resolved]
  - Partial seizures [Not Recovered/Not Resolved]
  - Syncope [Recovered/Resolved]
  - Sleep disorder [Not Recovered/Not Resolved]
  - Injury [Unknown]
